FAERS Safety Report 22336699 (Version 4)
Quarter: 2023Q4

REPORT INFORMATION
  Report Type: Spontaneous
  Country: US (occurrence: US)
  Receive Date: 20230518
  Receipt Date: 20231128
  Transmission Date: 20240110
  Serious: Yes (Disabling, Other)
  Sender: FDA-Public Use
  Company Number: US-PFIZER INC-PV202300076265

PATIENT
  Age: 57 Year
  Sex: Female
  Weight: 70.31 kg

DRUGS (11)
  1. ESTRING [Suspect]
     Active Substance: ESTRADIOL
     Dosage: UNK
  2. CHLORTHALIDONE [Concomitant]
     Active Substance: CHLORTHALIDONE
     Dosage: 1 G, 2X/DAY, (1 GM TABLETS BY MOUTH TWO TIMES A DAY WITH MEAL.)
     Route: 048
  3. OXYBUTYNIN [Concomitant]
     Active Substance: OXYBUTYNIN
     Dosage: 10 MG, 1X/DAY(1 TABLET BY MOUTH DAILY)
     Route: 048
  4. LEXAPRO [Concomitant]
     Active Substance: ESCITALOPRAM OXALATE
     Dosage: 20 MG, 1X/DAY(1 TABLET BY MOUTH EVERY MORNING)
     Route: 048
  5. WELLBUTRIN XL [Concomitant]
     Active Substance: BUPROPION HYDROCHLORIDE
     Dosage: 150 MG, DAILY (ONE OF THOSE BY MOUTH EVERY MORNING)
     Route: 048
  6. BACLOFEN [Concomitant]
     Active Substance: BACLOFEN
     Dosage: UNK
  7. BUSPAR [Concomitant]
     Active Substance: BUSPIRONE HYDROCHLORIDE
     Dosage: 15 MG, 2X/DAY(1 TABLET BY MOUTH 2 TIMES A DAY)
     Route: 048
  8. NORCO [Concomitant]
     Active Substance: ACETAMINOPHEN\HYDROCODONE BITARTRATE
     Indication: Pain
     Dosage: 1 DF, AS NEEDED, (1 TABLET BY MOUTH EVERY 4 HOURS AS NEEDED FOR PAIN)
     Route: 048
  9. OCREVUS [Concomitant]
     Active Substance: OCRELIZUMAB
     Dosage: UNK (30 MG/ML AND SHE TAKES INFUSION OF 20 ML WHICH 600 MG TOTAL EVERY 6 MONTHS)
  10. TRAZODONE [Concomitant]
     Active Substance: TRAZODONE HYDROCHLORIDE
     Indication: Sleep disorder
     Dosage: 150 MG, AS NEEDED (3 TABLETS FOR 150 MG TOTAL BY MOUTH AS NEEDED FOR SLEEP)
     Route: 048
  11. BOTOX [Concomitant]
     Active Substance: ONABOTULINUMTOXINA
     Indication: Muscle disorder
     Dosage: UNK, EVERY 3 MONTHS

REACTIONS (1)
  - Multiple sclerosis [Unknown]
